FAERS Safety Report 5508462-3 (Version None)
Quarter: 2007Q4

REPORT INFORMATION
  Report Type: 
  Country: None (occurrence: None)
  Receive Date: 20071031
  Receipt Date: 20070821
  Transmission Date: 20080405
  Serious: No
  Sender: FDA-Public Use
  Company Number: 200712836BWH

PATIENT
  Age: 86 Year
  Sex: Female

DRUGS (4)
  1. NEXAVAR [Suspect]
     Indication: MALIGNANT MELANOMA
     Dosage: 200 MG, BID, ORAL
     Route: 048
     Dates: start: 20070814, end: 20070817
  2. LISINOPRIL [Concomitant]
  3. MUCINEX [Concomitant]
  4. BENADRYL [Concomitant]

REACTIONS (4)
  - ALOPECIA [None]
  - PARAESTHESIA [None]
  - PRURITUS [None]
  - RASH MACULAR [None]
